FAERS Safety Report 10341276 (Version 15)
Quarter: 2021Q4

REPORT INFORMATION
  Report Type: Other
  Country: CA (occurrence: CA)
  Receive Date: 20140725
  Receipt Date: 20211020
  Transmission Date: 20220303
  Serious: Yes (Other)
  Sender: FDA-Public Use
  Company Number: CA-ROCHE-1440241

PATIENT
  Sex: Male

DRUGS (21)
  1. XOLAIR [Suspect]
     Active Substance: OMALIZUMAB
     Indication: Asthma
     Dosage: PFS
     Route: 058
     Dates: start: 20140331
  2. XOLAIR [Suspect]
     Active Substance: OMALIZUMAB
     Indication: Asthma
     Route: 058
     Dates: start: 20140805
  3. XOLAIR [Suspect]
     Active Substance: OMALIZUMAB
     Route: 058
     Dates: start: 20140818
  4. XOLAIR [Suspect]
     Active Substance: OMALIZUMAB
     Route: 058
     Dates: start: 20150427
  5. XOLAIR [Suspect]
     Active Substance: OMALIZUMAB
     Route: 058
     Dates: start: 20150831
  6. XOLAIR [Suspect]
     Active Substance: OMALIZUMAB
     Route: 058
     Dates: start: 20150914
  7. XOLAIR [Suspect]
     Active Substance: OMALIZUMAB
     Route: 058
     Dates: start: 20160524
  8. XOLAIR [Suspect]
     Active Substance: OMALIZUMAB
     Route: 058
     Dates: start: 20160606
  9. XOLAIR [Suspect]
     Active Substance: OMALIZUMAB
     Route: 058
     Dates: start: 20160620
  10. XOLAIR [Suspect]
     Active Substance: OMALIZUMAB
     Route: 058
     Dates: start: 20170731
  11. XOLAIR [Suspect]
     Active Substance: OMALIZUMAB
     Route: 058
     Dates: start: 20170814
  12. XOLAIR [Suspect]
     Active Substance: OMALIZUMAB
     Route: 058
     Dates: start: 20170828
  13. XOLAIR [Suspect]
     Active Substance: OMALIZUMAB
     Route: 058
     Dates: start: 20170911
  14. XOLAIR [Suspect]
     Active Substance: OMALIZUMAB
     Route: 058
     Dates: start: 20171218
  15. XOLAIR [Suspect]
     Active Substance: OMALIZUMAB
     Dosage: AVXS218004AND EXPIRY DATE: JUL 2018/AUG 2018
     Route: 058
     Dates: start: 20180219
  16. XOLAIR [Suspect]
     Active Substance: OMALIZUMAB
     Dosage: PFS
     Route: 058
  17. SYMBICORT [Concomitant]
     Active Substance: BUDESONIDE\FORMOTEROL FUMARATE DIHYDRATE
  18. GLYCOPYRROLATE [Concomitant]
     Active Substance: GLYCOPYRROLATE
  19. CORTISONE [Concomitant]
     Active Substance: CORTISONE
  20. SINGULAIR [Concomitant]
     Active Substance: MONTELUKAST SODIUM
  21. SALINEX [Concomitant]

REACTIONS (20)
  - Blood pressure increased [Not Recovered/Not Resolved]
  - Blood pressure decreased [Unknown]
  - Nasopharyngitis [Recovering/Resolving]
  - Epicondylitis [Unknown]
  - Fatigue [Recovering/Resolving]
  - Pyrexia [Recovering/Resolving]
  - Headache [Unknown]
  - Dysphonia [Recovering/Resolving]
  - Limb injury [Unknown]
  - Productive cough [Unknown]
  - Oropharyngeal pain [Unknown]
  - Myalgia [Recovering/Resolving]
  - Nasal congestion [Unknown]
  - Rhinorrhoea [Unknown]
  - Heart rate increased [Unknown]
  - Dyspnoea [Unknown]
  - Body temperature increased [Recovering/Resolving]
  - Pharyngeal paraesthesia [Unknown]
  - Sputum discoloured [Unknown]
  - Sense of oppression [Unknown]

NARRATIVE: CASE EVENT DATE: 20140625
